FAERS Safety Report 20739300 (Version 1)
Quarter: 2022Q2

REPORT INFORMATION
  Report Type: Spontaneous
  Country: BR (occurrence: BR)
  Receive Date: 20220422
  Receipt Date: 20220422
  Transmission Date: 20220721
  Serious: Yes (Death, Life-Threatening, Hospitalization)
  Sender: FDA-Public Use
  Company Number: BR-drreddys-SPO/BRA/22/0148916

PATIENT
  Age: 56 Year
  Sex: Male

DRUGS (5)
  1. DAPTOMYCIN [Suspect]
     Active Substance: DAPTOMYCIN
     Indication: Renal impairment
     Dosage: 1 VIAL EV 48/48H, DILUTE IN 50ML OF SALINE SOLUTION AND RUN FOR 1H
     Dates: start: 20220202, end: 20220218
  2. DAPTOMYCIN [Suspect]
     Active Substance: DAPTOMYCIN
     Indication: Drug hypersensitivity
  3. MEROPENEM [Concomitant]
     Active Substance: MEROPENEM
     Indication: Product used for unknown indication
     Dates: start: 20220107, end: 20220221
  4. POLYMYXIN B [Concomitant]
     Active Substance: POLYMYXIN B
     Indication: Product used for unknown indication
     Dates: start: 20220117, end: 20220323
  5. MICAFUNGIN [Concomitant]
     Active Substance: MICAFUNGIN
     Indication: Product used for unknown indication
     Dates: start: 20220120, end: 20220202

REACTIONS (1)
  - Rash vesicular [Fatal]

NARRATIVE: CASE EVENT DATE: 20220217
